FAERS Safety Report 4941229-3 (Version None)
Quarter: 2006Q1

REPORT INFORMATION
  Report Type: 
  Country: None (occurrence: None)
  Receive Date: 20060310
  Receipt Date: 20060310
  Transmission Date: 20060701
  Serious: Yes (Life-Threatening, Hospitalization)
  Sender: FDA-Public Use
  Company Number: None

PATIENT
  Age: 84 Year
  Sex: Male
  Weight: 73.9363 kg

DRUGS (1)
  1. TEQUIN [Suspect]
     Indication: PROPHYLAXIS
     Dosage: 200 MG DAILY PO
     Route: 048
     Dates: start: 20060216, end: 20060219

REACTIONS (3)
  - BLOOD GLUCOSE DECREASED [None]
  - LOSS OF CONSCIOUSNESS [None]
  - MENTAL STATUS CHANGES [None]
